FAERS Safety Report 23274761 (Version 1)
Quarter: 2023Q4

REPORT INFORMATION
  Report Type: Spontaneous
  Country: US (occurrence: US)
  Receive Date: 20231208
  Receipt Date: 20231208
  Transmission Date: 20240109
  Serious: Yes (Hospitalization, Other)
  Sender: FDA-Public Use
  Company Number: US-ALEMBIC PHARMACUETICALS LIMITED-2023SCAL001177

PATIENT

DRUGS (1)
  1. LOSARTAN POTASSIUM [Suspect]
     Active Substance: LOSARTAN POTASSIUM
     Indication: Hypertension
     Dosage: UNK
     Route: 065

REACTIONS (6)
  - Intestinal angioedema [Recovering/Resolving]
  - Diarrhoea haemorrhagic [Unknown]
  - Diarrhoea [Unknown]
  - Tenderness [Unknown]
  - Nausea [Unknown]
  - Abdominal pain [Recovered/Resolved]
